FAERS Safety Report 9115833 (Version 1)
Quarter: 2013Q1

REPORT INFORMATION
  Report Type: Spontaneous
  Country: FR (occurrence: FR)
  Receive Date: 20130224
  Receipt Date: 20130224
  Transmission Date: 20140127
  Serious: Yes (Other)
  Sender: FDA-Public Use
  Company Number: FR-BRISTOL-MYERS SQUIBB COMPANY-17388885

PATIENT
  Age: 87 Year
  Sex: Male

DRUGS (4)
  1. ABILIFY TABS [Suspect]
     Indication: ABNORMAL BEHAVIOUR
     Dosage: STARTED AT 2.5MG/D 2010-UNK?UNK-JAN11 INCR TO 15MG/D
     Route: 048
     Dates: start: 2010, end: 201101
  2. ABILIFY TABS [Suspect]
     Indication: AUTISM
     Dosage: STARTED AT 2.5MG/D 2010-UNK?UNK-JAN11 INCR TO 15MG/D
     Route: 048
     Dates: start: 2010, end: 201101
  3. RISPERDAL [Concomitant]
     Indication: ABNORMAL BEHAVIOUR
     Route: 048
     Dates: end: 201010
  4. RISPERDAL [Concomitant]
     Indication: AUTISM
     Route: 048
     Dates: end: 201010

REACTIONS (3)
  - Loss of consciousness [Recovered/Resolved]
  - Syncope [Recovered/Resolved]
  - Off label use [Unknown]
